FAERS Safety Report 15638251 (Version 1)
Quarter: 2018Q4

REPORT INFORMATION
  Report Type: Spontaneous
  Country: US (occurrence: US)
  Receive Date: 20181120
  Receipt Date: 20181120
  Transmission Date: 20190205
  Serious: No
  Sender: FDA-Public Use
  Company Number: US-JNJFOC-20180810385

PATIENT
  Sex: Male

DRUGS (11)
  1. CLONAZEPAM. [Concomitant]
     Active Substance: CLONAZEPAM
  2. IMBRUVICA [Suspect]
     Active Substance: IBRUTINIB
     Indication: WALDENSTROM^S MACROGLOBULINAEMIA
     Route: 048
     Dates: start: 2018, end: 201805
  3. LAMICTAL [Concomitant]
     Active Substance: LAMOTRIGINE
  4. AXERT [Concomitant]
     Active Substance: ALMOTRIPTAN MALATE
  5. DICYCLOMINE [Concomitant]
     Active Substance: DICYCLOMINE HYDROCHLORIDE
  6. AMLODIPINE [Concomitant]
     Active Substance: AMLODIPINE BESYLATE
  7. OMEPRAZOLE. [Concomitant]
     Active Substance: OMEPRAZOLE
  8. PRAVASTATIN. [Concomitant]
     Active Substance: PRAVASTATIN
  9. CLONIDINE. [Concomitant]
     Active Substance: CLONIDINE
  10. IMBRUVICA [Suspect]
     Active Substance: IBRUTINIB
     Indication: WALDENSTROM^S MACROGLOBULINAEMIA
     Route: 048
     Dates: start: 201805
  11. BUPROPION. [Concomitant]
     Active Substance: BUPROPION

REACTIONS (3)
  - Off label use [Unknown]
  - Blood blister [Not Recovered/Not Resolved]
  - Product use issue [Unknown]

NARRATIVE: CASE EVENT DATE: 2018
